FAERS Safety Report 23538888 (Version 2)
Quarter: 2024Q1

REPORT INFORMATION
  Report Type: Spontaneous
  Country: DK (occurrence: DK)
  Receive Date: 20240219
  Receipt Date: 20240328
  Transmission Date: 20240409
  Serious: Yes (Other)
  Sender: FDA-Public Use
  Company Number: DK-SA-SAC20240213001310

PATIENT
  Age: 42 Year
  Sex: Male
  Weight: 80 kg

DRUGS (2)
  1. DUPILUMAB [Suspect]
     Active Substance: DUPILUMAB
     Indication: Asthma
     Dosage: 300 MG
     Route: 058
     Dates: start: 20221122
  2. DUPILUMAB [Suspect]
     Active Substance: DUPILUMAB
     Indication: Chronic rhinosinusitis with nasal polyps
     Dosage: 300 MG
     Route: 065
     Dates: start: 202305, end: 20240201

REACTIONS (4)
  - Adrenal insufficiency [Unknown]
  - Condition aggravated [Unknown]
  - Infection [Unknown]
  - Fatigue [Unknown]

NARRATIVE: CASE EVENT DATE: 20230501
